FAERS Safety Report 10039252 (Version 2)
Quarter: 2014Q2

REPORT INFORMATION
  Report Type: Report from Study
  Country: CZ (occurrence: CZ)
  Receive Date: 20140326
  Receipt Date: 20140428
  Transmission Date: 20141212
  Serious: Yes (Hospitalization)
  Sender: FDA-Public Use
  Company Number: CZ-VERTEX PHARMACEUTICALS INC-2014-001555

PATIENT
  Age: 25 Year
  Sex: Female

DRUGS (14)
  1. VX-950 (TELAPREVIR) [Suspect]
     Indication: CHRONIC HEPATITIS C
     Dosage: 2250 MG, QD
     Route: 048
     Dates: start: 20131021, end: 20140108
  2. Z-PEGYLATED INTERFERON-2A [Suspect]
     Indication: CHRONIC HEPATITIS C
     Dosage: 180 ?G, QW
     Route: 058
     Dates: start: 20131021
  3. Z-RIBAVIRIN [Suspect]
     Indication: CHRONIC HEPATITIS C
     Dosage: 1000 MG, QD
     Route: 048
     Dates: start: 20131021
  4. Z-RIBAVIRIN [Suspect]
     Dosage: 600 UNK, UNK
     Route: 048
     Dates: start: 20140106, end: 20140224
  5. PEGINTERFERON LAMBDA-1A [Suspect]
     Indication: CHRONIC HEPATITIS C
     Dosage: 180 ?G, QW
     Route: 058
     Dates: start: 20131021
  6. DITHIADEN [Concomitant]
  7. HYDROCORTISONE [Concomitant]
  8. PARAFFIN [Concomitant]
     Dosage: DOSAGE FORM: LIQUID
  9. CUTIVATE [Concomitant]
  10. IBALGIN [Concomitant]
  11. LEVOCETIRIZINE [Concomitant]
  12. FLUTICASONE [Concomitant]
  13. DESLORATADINE [Concomitant]
  14. IBUPROFEN [Concomitant]

REACTIONS (1)
  - Rash [Recovered/Resolved]
